FAERS Safety Report 8115201-9 (Version None)
Quarter: 2012Q1

REPORT INFORMATION
  Report Type: 
  Country: None (occurrence: None)
  Receive Date: 20120206
  Receipt Date: 20120206
  Transmission Date: 20120608
  Serious: Yes (Other)
  Sender: FDA-Public Use
  Company Number: US-JNJFOC-20110610237

PATIENT
  Sex: Female

DRUGS (2)
  1. REMICADE [Suspect]
     Indication: ARTHRITIS
     Route: 042
     Dates: start: 20100101, end: 20110101
  2. REMICADE [Suspect]
     Route: 042

REACTIONS (3)
  - FALL [None]
  - UPPER LIMB FRACTURE [None]
  - PAIN [None]
